FAERS Safety Report 10147077 (Version 1)
Quarter: 2014Q2

REPORT INFORMATION
  Report Type: Spontaneous
  Country: US (occurrence: US)
  Receive Date: 20140501
  Receipt Date: 20140501
  Transmission Date: 20141212
  Serious: No
  Sender: FDA-Public Use
  Company Number: US-TEVA-478955USA

PATIENT
  Sex: Female

DRUGS (1)
  1. COPAXONE [Suspect]
     Indication: MULTIPLE SCLEROSIS
     Dates: start: 20140317, end: 20140413

REACTIONS (6)
  - Pyrexia [Unknown]
  - Palpitations [Unknown]
  - Chills [Unknown]
  - Pain [Unknown]
  - Eye disorder [Unknown]
  - Headache [Unknown]
